FAERS Safety Report 10222400 (Version 1)
Quarter: 2014Q2

REPORT INFORMATION
  Report Type: Spontaneous
  Country: IT (occurrence: IT)
  Receive Date: 20140606
  Receipt Date: 20140606
  Transmission Date: 20141212
  Serious: Yes (Other)
  Sender: FDA-Public Use
  Company Number: IT-ACTAVIS-2013-25263

PATIENT
  Age: 55 Year
  Sex: Female

DRUGS (2)
  1. IRINOTECAN (UNKNOWN) [Suspect]
     Indication: ADENOCARCINOMA OF COLON
     Dosage: 140 MG, UNKNOWN
     Route: 042
     Dates: start: 20130627, end: 20130627
  2. ERBITUX [Suspect]
     Indication: ADENOCARCINOMA OF COLON
     Dosage: UNK UNK, UNKNOWN
     Route: 065
     Dates: start: 20130219, end: 20130822

REACTIONS (3)
  - Anaemia [Recovered/Resolved]
  - Myalgia [Recovered/Resolved]
  - Neutropenia [Recovered/Resolved]
